FAERS Safety Report 13015295 (Version 1)
Quarter: 2016Q4

REPORT INFORMATION
  Report Type: Spontaneous
  Country: US (occurrence: US)
  Receive Date: 20161211
  Receipt Date: 20161211
  Transmission Date: 20170207
  Serious: Yes (Other)
  Sender: FDA-Public Use
  Company Number: US-BEH-2016075793

PATIENT
  Age: 40 Year
  Sex: Female
  Weight: 122.45 kg

DRUGS (25)
  1. DIPHENHYDRAMINE. [Concomitant]
     Active Substance: DIPHENHYDRAMINE
  2. TOPIRAMATE. [Concomitant]
     Active Substance: TOPIRAMATE
  3. VIMPAT [Concomitant]
     Active Substance: LACOSAMIDE
  4. BERINERT [Suspect]
     Active Substance: HUMAN C1-ESTERASE INHIBITOR
     Indication: HEREDITARY ANGIOEDEMA
     Dosage: 2500 IU, QD
     Route: 042
     Dates: start: 20150415
  5. HEPARIN [Concomitant]
     Active Substance: HEPARIN SODIUM
  6. SODIUM CHLORIDE. [Concomitant]
     Active Substance: SODIUM CHLORIDE
  7. ZANTAC [Concomitant]
     Active Substance: RANITIDINE HYDROCHLORIDE
  8. FERROUS SULFATE. [Concomitant]
     Active Substance: FERROUS SULFATE
  9. VITAMIN B12 [Concomitant]
     Active Substance: CYANOCOBALAMIN
  10. VITAMIN D                          /00107901/ [Concomitant]
     Active Substance: ERGOCALCIFEROL
  11. ZOFRAN [Concomitant]
     Active Substance: ONDANSETRON HYDROCHLORIDE
  12. KLOR-CON [Concomitant]
     Active Substance: POTASSIUM CHLORIDE
  13. ZYRTEC [Concomitant]
     Active Substance: CETIRIZINE HYDROCHLORIDE
  14. RANEXA [Concomitant]
     Active Substance: RANOLAZINE
  15. SPIRONOLACTON [Concomitant]
     Active Substance: SPIRONOLACTONE
  16. EPIPEN [Concomitant]
     Active Substance: EPINEPHRINE
  17. STERILE WATER [Concomitant]
     Active Substance: WATER
  18. TRAMADOL. [Concomitant]
     Active Substance: TRAMADOL
  19. SINGULAIR [Concomitant]
     Active Substance: MONTELUKAST SODIUM
  20. METOPROLOL. [Concomitant]
     Active Substance: METOPROLOL
  21. COUMADIN [Concomitant]
     Active Substance: WARFARIN SODIUM
  22. LIPITOR [Concomitant]
     Active Substance: ATORVASTATIN CALCIUM
  23. GABAPENTIN. [Concomitant]
     Active Substance: GABAPENTIN
  24. MIRAPEX [Concomitant]
     Active Substance: PRAMIPEXOLE DIHYDROCHLORIDE
  25. LASIX [Concomitant]
     Active Substance: FUROSEMIDE

REACTIONS (1)
  - Hereditary angioedema [Unknown]

NARRATIVE: CASE EVENT DATE: 20161202
